FAERS Safety Report 4643591-8 (Version None)
Quarter: 2005Q2

REPORT INFORMATION
  Report Type: 
  Country: None (occurrence: None)
  Receive Date: 20050425
  Receipt Date: 20050421
  Transmission Date: 20051028
  Serious: Yes (Death)
  Sender: FDA-Public Use
  Company Number: US-BOEHRINGER INGELHEIM PHARMACEUTICALS, INC.-2005-BP-06592RO

PATIENT
  Sex: Female

DRUGS (4)
  1. METHADONE HCL [Suspect]
     Indication: PAIN MANAGEMENT
     Dosage: 30 MG EVERY 6 HOURS
     Route: 048
     Dates: start: 20030616, end: 20030617
  2. AMITRIPTYLINE HCL TAB [Suspect]
  3. MEPERIDINE HCL [Suspect]
  4. LIDOCAINE [Suspect]

REACTIONS (2)
  - DRUG TOXICITY [None]
  - OVERDOSE [None]
